FAERS Safety Report 17403959 (Version 1)
Quarter: 2020Q1

REPORT INFORMATION
  Report Type: Spontaneous
  Country: US (occurrence: US)
  Receive Date: 20200211
  Receipt Date: 20200211
  Transmission Date: 20200409
  Serious: No
  Sender: FDA-Public Use
  Company Number: US-ICU MEDICAL, INC.-ICU2019US00032

PATIENT

DRUGS (3)
  1. 0.9% SODIUM CHLORIDE INJECTION USP (250 ML) [Suspect]
     Active Substance: SODIUM CHLORIDE
     Dosage: UNK
  2. CYCLOPHOSPHAMIDE. [Suspect]
     Active Substance: CYCLOPHOSPHAMIDE
     Indication: CHEMOTHERAPY
     Route: 065
  3. 0.9% SODIUM CHLORIDE INJECTION USP (250 ML) [Suspect]
     Active Substance: SODIUM CHLORIDE
     Indication: PRODUCT USED FOR UNKNOWN INDICATION
     Dosage: 250 MILLILITER
     Route: 042

REACTIONS (4)
  - Product packaging issue [Unknown]
  - Accidental exposure to product [Unknown]
  - No adverse event [Unknown]
  - Product leakage [Unknown]
